FAERS Safety Report 7399337-6 (Version None)
Quarter: 2011Q1

REPORT INFORMATION
  Report Type: 
  Country: None (occurrence: None)
  Receive Date: 20110328
  Receipt Date: 20110311
  Transmission Date: 20110831
  Serious: Yes (Life-Threatening, Hospitalization)
  Sender: FDA-Public Use
  Company Number: DSA_45176_2011

PATIENT
  Age: 48 Year
  Sex: Male

DRUGS (5)
  1. CALCIUM FOLINATE (CALCIUM FOLINATE) 375 MG QD, 187.5 MG, 375 MG [Suspect]
     Indication: COLON CANCER
     Dosage: 375 MG QD DF; 187.5 MG DF; 375 MG DF;
  2. DILTIAZEM HCL [Suspect]
     Indication: PRODUCT USED FOR UNKNOWN INDICATION
     Dosage: DF;
  3. FLUOROURACIL [Suspect]
     Indication: COLON CANCER
     Dosage: SEE IMAGE: INTRAVENOUS BOLUS
     Route: 040
  4. OXALIPLATIN [Suspect]
     Indication: COLON CANCER
     Dosage: 160 MG, QD, DF, DF, DF.
  5. RAMIPRIL [Suspect]
     Indication: PRODUCT USED FOR UNKNOWN INDICATION
     Dosage: DF;

REACTIONS (8)
  - LEFT VENTRICULAR DYSFUNCTION [None]
  - STATUS EPILEPTICUS [None]
  - CARDIAC ARREST [None]
  - MYOCARDIAL FIBROSIS [None]
  - VOMITING [None]
  - VENTRICULAR TACHYCARDIA [None]
  - DIARRHOEA [None]
  - STRESS CARDIOMYOPATHY [None]
